FAERS Safety Report 4296416-7 (Version None)
Quarter: 2004Q1

REPORT INFORMATION
  Report Type: 
  Country: None (occurrence: None)
  Receive Date: 20040213
  Receipt Date: 20040213
  Transmission Date: 20041129
  Serious: Yes (Hospitalization)
  Sender: FDA-Public Use
  Company Number: None

PATIENT
  Sex: Male

DRUGS (4)
  1. GEMCITABINE [Suspect]
     Indication: PANCREATIC CARCINOMA
     Dosage: 600 MG/M2 INTRAVENOUS
     Route: 042
     Dates: start: 20020818, end: 20040209
  2. ZOFRAN [Concomitant]
  3. IRINOTECAN [Suspect]
     Indication: PANCREATIC CARCINOMA
     Dosage: 37.5 MG/M2 INTRAVENOUS
     Route: 042
     Dates: start: 20020818, end: 20040209
  4. DECADRON [Concomitant]

REACTIONS (1)
  - INTESTINAL OBSTRUCTION [None]
